FAERS Safety Report 15576551 (Version 8)
Quarter: 2019Q3

REPORT INFORMATION
  Report Type: Report from Study
  Country: JP (occurrence: JP)
  Receive Date: 20181101
  Receipt Date: 20190924
  Transmission Date: 20191004
  Serious: Yes (Hospitalization)
  Sender: FDA-Public Use
  Company Number: JP-EISAI MEDICAL RESEARCH-EC-2018-047188

PATIENT
  Age: 70 Year
  Sex: Male
  Weight: 54 kg

DRUGS (14)
  1. LENVATINIB [Suspect]
     Active Substance: LENVATINIB
     Route: 048
     Dates: start: 20181112, end: 20181228
  2. PEMBROLIZUMAB. [Suspect]
     Active Substance: PEMBROLIZUMAB
     Indication: RENAL CELL CARCINOMA
     Route: 041
     Dates: start: 20180829, end: 20190729
  3. DOVOBET [Concomitant]
     Active Substance: BETAMETHASONE\CALCIPOTRIENE
  4. LENVATINIB [Suspect]
     Active Substance: LENVATINIB
     Indication: RENAL CELL CARCINOMA
     Route: 048
     Dates: start: 20180829, end: 20180914
  5. PETROLATUM. [Concomitant]
     Active Substance: PETROLATUM
  6. AMLODIPINE [Concomitant]
     Active Substance: AMLODIPINE BESYLATE
  7. LENVATINIB [Suspect]
     Active Substance: LENVATINIB
     Route: 048
     Dates: start: 20180919, end: 20181004
  8. TEPRENONE [Concomitant]
     Active Substance: TEPRENONE
  9. ELSAMET [Concomitant]
  10. HIRUDOID [Concomitant]
     Active Substance: GLYCOSAMINOGLYCANS
  11. LENVATINIB [Suspect]
     Active Substance: LENVATINIB
     Route: 048
     Dates: start: 20190204, end: 20190211
  12. LENVATINIB [Suspect]
     Active Substance: LENVATINIB
     Route: 048
     Dates: start: 20190213, end: 20190226
  13. ZACRAS [Concomitant]
     Active Substance: AMLODIPINE BESYLATE\AZILSARTAN
  14. DERMOVATE SCALP [Concomitant]
     Active Substance: CLOBETASOL

REACTIONS (1)
  - Cellulitis [Recovered/Resolved]

NARRATIVE: CASE EVENT DATE: 20181029
